FAERS Safety Report 26088824 (Version 2)
Quarter: 2025Q4

REPORT INFORMATION
  Report Type: Spontaneous
  Country: JP (occurrence: JP)
  Receive Date: 20251125
  Receipt Date: 20251226
  Transmission Date: 20260118
  Serious: Yes (Other)
  Sender: MERCK SHARP & DOHME LLC
  Company Number: JP-009507513-2352423

PATIENT
  Age: 84 Year
  Sex: Male

DRUGS (5)
  1. KEYTRUDA [Suspect]
     Active Substance: PEMBROLIZUMAB
     Indication: Gastric cancer stage IV
     Route: 041
  2. FOLFOX (Fluorouracil+Leucovorin+ Oxaliplatin) [Concomitant]
  3. FOLFOX (Fluorouracil+Leucovorin+ Oxaliplatin) [Concomitant]
  4. FOLFOX (Fluorouracil+Leucovorin+ Oxaliplatin) [Concomitant]
  5. TRASTUZUMAB [Concomitant]
     Active Substance: TRASTUZUMAB

REACTIONS (6)
  - Neuropathy peripheral [Unknown]
  - White blood cell count decreased [Unknown]
  - Blood thyroid stimulating hormone increased [Unknown]
  - Neutrophil count decreased [Unknown]
  - Decreased appetite [Unknown]
  - Malaise [Unknown]
